FAERS Safety Report 6216140-0 (Version None)
Quarter: 2009Q2

REPORT INFORMATION
  Report Type: 
  Country: None (occurrence: None)
  Receive Date: 20090605
  Receipt Date: 20090603
  Transmission Date: 20091009
  Serious: Yes (Other)
  Sender: FDA-Public Use
  Company Number: JP-BAYER-200911862BYL

PATIENT
  Age: 78 Year
  Sex: Female
  Weight: 57 kg

DRUGS (4)
  1. NEXAVAR [Suspect]
     Indication: RENAL CELL CARCINOMA STAGE IV
     Dosage: TOTAL DAILY DOSE: 800 MG  UNIT DOSE: 200 MG
     Route: 048
     Dates: start: 20090323, end: 20090406
  2. NEXAVAR [Suspect]
     Route: 048
     Dates: start: 20090415
  3. MUCOSTA [Concomitant]
     Route: 048
     Dates: start: 20090407
  4. MAGMITT [Concomitant]
     Route: 048
     Dates: start: 20090424

REACTIONS (6)
  - ALOPECIA [None]
  - BONE MARROW FAILURE [None]
  - DIARRHOEA [None]
  - HYPERTENSION [None]
  - PALMAR-PLANTAR ERYTHRODYSAESTHESIA SYNDROME [None]
  - RASH [None]
